FAERS Safety Report 19493635 (Version 9)
Quarter: 2022Q3

REPORT INFORMATION
  Report Type: Report from Study
  Country: GB (occurrence: GB)
  Receive Date: 20210705
  Receipt Date: 20220813
  Transmission Date: 20221027
  Serious: Yes (Life-Threatening, Hospitalization, Other)
  Sender: FDA-Public Use
  Company Number: NVSC2021GB149950

PATIENT
  Age: 60 Year
  Sex: Male

DRUGS (3)
  1. COSENTYX [Suspect]
     Active Substance: SECUKINUMAB
     Indication: Psoriasis
     Dosage: 150 MILLIGRAM PER MILLILITRE
     Route: 058
     Dates: start: 20171116, end: 20190313
  2. COSENTYX [Suspect]
     Active Substance: SECUKINUMAB
     Indication: Psoriatic arthropathy
     Dosage: 150 MG
     Route: 058
  3. COSENTYX [Suspect]
     Active Substance: SECUKINUMAB
     Indication: Ankylosing spondylitis

REACTIONS (46)
  - Residual urine volume increased [Recovered/Resolved]
  - Small intestinal obstruction [Recovered/Resolved]
  - Incarcerated parastomal hernia [Recovered/Resolved with Sequelae]
  - Abdominal pain [Recovered/Resolved]
  - Gastrointestinal stoma output decreased [Recovering/Resolving]
  - Gastrointestinal stoma output decreased [Recovered/Resolved]
  - Abdominal pain [Recovered/Resolved]
  - Pain [Recovered/Resolved]
  - Nausea [Recovered/Resolved]
  - Abdominal pain [Recovered/Resolved]
  - Dyspnoea [Recovered/Resolved]
  - Diarrhoea [Recovered/Resolved]
  - Abdominal pain [Recovered/Resolved]
  - Gastrointestinal stoma complication [Recovered/Resolved]
  - Dyspnoea [Recovered/Resolved]
  - Ureterolithiasis [Recovered/Resolved]
  - COVID-19 pneumonia [Recovered/Resolved]
  - Gastrointestinal stoma output abnormal [Recovered/Resolved]
  - Abdominal pain [Recovered/Resolved]
  - Gastrointestinal stoma complication [Recovered/Resolved]
  - Small intestinal obstruction [Recovered/Resolved]
  - Gastroenteritis viral [Recovered/Resolved]
  - Acute kidney injury [Recovered/Resolved]
  - Muscle spasms [Recovered/Resolved]
  - Vomiting [Recovered/Resolved]
  - Acute kidney injury [Recovered/Resolved]
  - Lethargy [Recovered/Resolved]
  - COVID-19 [Recovered/Resolved]
  - Productive cough [Recovering/Resolving]
  - Vomiting [Recovered/Resolved]
  - Cough [Recovered/Resolved]
  - Palpitations [Recovered/Resolved]
  - Urinary retention [Recovered/Resolved]
  - Fatigue [Recovered/Resolved]
  - Gastrointestinal stoma output decreased [Recovered/Resolved]
  - Vomiting [Recovered/Resolved]
  - Vomiting [Recovered/Resolved]
  - Volvulus of small bowel [Recovered/Resolved]
  - Cardiac dysfunction [Recovered/Resolved]
  - Hernia obstructive [Recovered/Resolved]
  - Abdominal distension [Recovered/Resolved]
  - Diarrhoea [Recovered/Resolved]
  - Pelvic abscess [Recovered/Resolved]
  - Panniculitis [Not Recovered/Not Resolved]
  - Abdominal pain [Recovered/Resolved]
  - Gastroenteritis [Recovered/Resolved]

NARRATIVE: CASE EVENT DATE: 20190312
